FAERS Safety Report 12952984 (Version 1)
Quarter: 2016Q4

REPORT INFORMATION
  Report Type: Report from Study
  Country: US (occurrence: US)
  Receive Date: 20161117
  Receipt Date: 20161117
  Transmission Date: 20170207
  Serious: Yes (Hospitalization)
  Sender: FDA-Public Use
  Company Number: US-ACTELION-A-NJ2016-133246

PATIENT
  Age: 45 Year
  Sex: Female

DRUGS (6)
  1. VELETRI [Suspect]
     Active Substance: EPOPROSTENOL
     Indication: PULMONARY HYPERTENSION
     Dosage: 12 NG/KG, PER MIN
     Route: 042
     Dates: start: 20160225
  2. VELETRI [Suspect]
     Active Substance: EPOPROSTENOL
     Dosage: 22 NG/KG, PER MIN
     Route: 042
  3. VELETRI [Suspect]
     Active Substance: EPOPROSTENOL
     Dosage: 29 NG/KG, PER MIN
     Route: 042
  4. VELETRI [Suspect]
     Active Substance: EPOPROSTENOL
     Dosage: 26 NG/KG, PER MIN
     Route: 042
  5. ADCIRCA [Concomitant]
     Active Substance: TADALAFIL
     Dosage: UNK
     Dates: end: 201610
  6. COUMADIN [Concomitant]
     Active Substance: WARFARIN SODIUM

REACTIONS (20)
  - Abdominal cavity drainage [Unknown]
  - Productive cough [Unknown]
  - Fluid retention [Unknown]
  - Eye pain [Unknown]
  - Dyspnoea [Recovering/Resolving]
  - Nasal discomfort [Unknown]
  - Catheter site erythema [Recovered/Resolved]
  - Ascites [Unknown]
  - Eye irritation [Unknown]
  - Weight increased [Recovering/Resolving]
  - Flushing [Unknown]
  - Pain in extremity [Not Recovered/Not Resolved]
  - Dysphonia [Unknown]
  - Device issue [Unknown]
  - Pain in jaw [Not Recovered/Not Resolved]
  - Device leakage [Unknown]
  - Oedema [Unknown]
  - Nausea [Unknown]
  - Nasopharyngitis [Unknown]
  - Feeling abnormal [Unknown]
